FAERS Safety Report 10167844 (Version 2)
Quarter: 2014Q2

REPORT INFORMATION
  Report Type: Spontaneous
  Country: US (occurrence: US)
  Receive Date: 20140512
  Receipt Date: 20140512
  Transmission Date: 20141212
  Serious: Yes (Life-Threatening, Other)
  Sender: FDA-Public Use
  Company Number: US-TEVA-479300USA

PATIENT
  Sex: Male
  Weight: 108.96 kg

DRUGS (6)
  1. AMPHETAMINE W/DEXTROAMPHETAMINE [Suspect]
  2. CLONIDINE [Suspect]
  3. VALPROATE SEMISODIUM [Suspect]
     Dosage: DR
  4. RISPERDAL [Suspect]
  5. DEXEDRINE [Suspect]
  6. FLURAZEPAM [Suspect]

REACTIONS (11)
  - Drug hypersensitivity [Unknown]
  - Suicide attempt [Unknown]
  - Liver disorder [Unknown]
  - Crohn^s disease [Unknown]
  - Hypertension [Unknown]
  - Insomnia [Unknown]
  - Depression [Unknown]
  - Infertility male [Unknown]
  - Abnormal weight gain [Unknown]
  - Anxiety [Unknown]
  - Mood altered [Unknown]
